FAERS Safety Report 8358571-9 (Version None)
Quarter: 2012Q2

REPORT INFORMATION
  Report Type: 
  Country: None (occurrence: None)
  Receive Date: 20120514
  Receipt Date: 20120510
  Transmission Date: 20120825
  Serious: No
  Sender: FDA-Public Use
  Company Number: US-PFIZER INC-2012114971

PATIENT
  Sex: Female
  Weight: 68.027 kg

DRUGS (2)
  1. ARAVA [Concomitant]
     Dosage: 10 MG, UNK
  2. LYRICA [Suspect]
     Indication: FIBROMYALGIA
     Dosage: 100 MG, 3X/DAY
     Route: 048
     Dates: start: 20120201

REACTIONS (3)
  - SINUS DISORDER [None]
  - MALAISE [None]
  - INFLUENZA [None]
